FAERS Safety Report 15105777 (Version 1)
Quarter: 2018Q3

REPORT INFORMATION
  Report Type: Spontaneous
  Country: IT (occurrence: IT)
  Receive Date: 20180704
  Receipt Date: 20180704
  Transmission Date: 20181010
  Serious: Yes (Other)
  Sender: FDA-Public Use
  Company Number: IT-TEVA-2018-IT-918684

PATIENT
  Age: 84 Year
  Sex: Female
  Weight: 49 kg

DRUGS (3)
  1. LANTUS [Concomitant]
     Active Substance: INSULIN GLARGINE
     Dosage: 28 DOSAGE FORMS DAILY;
     Route: 058
  2. BACTRIM [Suspect]
     Active Substance: SULFAMETHOXAZOLE\TRIMETHOPRIM
     Indication: URINARY TRACT INFECTION
     Route: 048
     Dates: start: 20180409, end: 20180413
  3. REPAGLINIDE. [Suspect]
     Active Substance: REPAGLINIDE
     Dosage: 6 MILLIGRAM DAILY;
     Route: 048

REACTIONS (2)
  - Hyperkalaemia [Recovering/Resolving]
  - Hypoglycaemic coma [Recovering/Resolving]

NARRATIVE: CASE EVENT DATE: 20180412
